FAERS Safety Report 12752087 (Version 1)
Quarter: 2016Q3

REPORT INFORMATION
  Report Type: Spontaneous
  Country: US (occurrence: US)
  Receive Date: 20160915
  Receipt Date: 20160915
  Transmission Date: 20161109
  Serious: No
  Sender: FDA-Public Use
  Company Number: US-AQUA PHARMACEUTICALS-2016AQU000058

PATIENT
  Age: 56 Year
  Sex: Female
  Weight: 59.86 kg

DRUGS (2)
  1. FLUOROPLEX [Suspect]
     Active Substance: FLUOROURACIL
     Indication: PRECANCEROUS CELLS PRESENT
     Dosage: UNK, BID
     Route: 061
     Dates: start: 201602
  2. ATORVASTATIN [Concomitant]
     Active Substance: ATORVASTATIN
     Indication: PRODUCT USED FOR UNKNOWN INDICATION
     Dosage: UNK

REACTIONS (1)
  - Dyspnoea [Not Recovered/Not Resolved]

NARRATIVE: CASE EVENT DATE: 20160229
